FAERS Safety Report 8302471-7 (Version None)
Quarter: 2012Q2

REPORT INFORMATION
  Report Type: 
  Country: None (occurrence: None)
  Receive Date: 20120402
  Receipt Date: 20120323
  Transmission Date: 20120825
  Serious: Yes (Death, Life-Threatening, Hospitalization)
  Sender: FDA-Public Use
  Company Number: 2011030436

PATIENT
  Age: 75 Year
  Sex: Male

DRUGS (13)
  1. ATACAND [Concomitant]
  2. ISOPTIN [Concomitant]
  3. CORDARONE [Concomitant]
  4. SYMBICORT [Concomitant]
  5. PRIVIGEN [Suspect]
     Indication: HUMORAL IMMUNE DEFECT
     Dosage: 20 G QD, INTRAVENOUS (NOT OTHERWISE SPECIFIED)
     Route: 042
     Dates: start: 20101103, end: 20111103
  6. PRIVIGEN [Suspect]
     Indication: HUMORAL IMMUNE DEFECT
     Dosage: 25 GG 1X/MONTH, INTRAVENOUS (NOT OTHERWISE SPECIFIED)
     Route: 042
     Dates: start: 20110901
  7. ACARBOSE [Concomitant]
  8. COLCHICINE [Concomitant]
  9. SINTROM [Concomitant]
  10. FERROUS FUMARATE [Concomitant]
  11. LASILIX (FUROSEMIDE) [Concomitant]
  12. PRIVIGEN [Suspect]
     Indication: HUMORAL IMMUNE DEFECT
     Dosage: 5 G QD,  INTRAVENOUS (NOT OTHERWISE SPECIFIED
     Route: 042
     Dates: start: 20111103, end: 20111103
  13. ALLOPURINOL [Concomitant]

REACTIONS (13)
  - CYANOSIS [None]
  - MITRAL VALVE INCOMPETENCE [None]
  - HEART SOUNDS ABNORMAL [None]
  - AORTIC BRUIT [None]
  - BLOOD PRESSURE DECREASED [None]
  - ELECTROENCEPHALOGRAM ABNORMAL [None]
  - TACHYCARDIA [None]
  - APPARENT LIFE THREATENING EVENT [None]
  - RASH MACULAR [None]
  - BLOOD PRESSURE SYSTOLIC INCREASED [None]
  - CARDIO-RESPIRATORY ARREST [None]
  - EXTENSOR PLANTAR RESPONSE [None]
  - HYPOKALAEMIA [None]
